FAERS Safety Report 10344952 (Version 1)
Quarter: 2014Q3

REPORT INFORMATION
  Report Type: Spontaneous
  Country: US (occurrence: US)
  Receive Date: 20140728
  Receipt Date: 20140728
  Transmission Date: 20150326
  Serious: No
  Sender: FDA-Public Use
  Company Number: US-PFIZER INC-2014207499

PATIENT
  Age: 62 Year
  Sex: Female
  Weight: 85.26 kg

DRUGS (2)
  1. LYRICA [Suspect]
     Active Substance: PREGABALIN
     Indication: DIABETIC NEPHROPATHY
     Dosage: 50 MG, 3X/DAY
     Route: 048
     Dates: start: 201405, end: 201405
  2. LYRICA [Suspect]
     Active Substance: PREGABALIN
     Dosage: 100 MG (BY TAKING TWO 50MG IN MORNING AND TWO 50MG AT NIGHT), 2X/DAY
     Route: 048
     Dates: start: 201405

REACTIONS (2)
  - Weight increased [Unknown]
  - Drug ineffective [Unknown]

NARRATIVE: CASE EVENT DATE: 201405
